FAERS Safety Report 12121747 (Version 1)
Quarter: 2016Q1

REPORT INFORMATION
  Report Type: Spontaneous
  Country: US (occurrence: US)
  Receive Date: 20160226
  Receipt Date: 20160226
  Transmission Date: 20160526
  Serious: No
  Sender: FDA-Public Use
  Company Number: US-ALLERGAN-1206575US

PATIENT
  Age: 68 Year
  Sex: Female

DRUGS (3)
  1. REFRESH OPTIVE [Suspect]
     Active Substance: CARBOXYMETHYLCELLULOSE SODIUM\GLYCERIN
     Indication: DRY EYE
     Route: 047
  2. GLUCOSAMINE [Concomitant]
     Active Substance: GLUCOSAMINE
     Indication: ARTHRITIS
  3. GENTILE [Concomitant]
     Indication: DRY EYE

REACTIONS (3)
  - Headache [Not Recovered/Not Resolved]
  - Eye irritation [Recovered/Resolved]
  - Eye pain [Not Recovered/Not Resolved]
